FAERS Safety Report 8509764-9 (Version None)
Quarter: 2012Q3

REPORT INFORMATION
  Report Type: 
  Country: None (occurrence: None)
  Receive Date: 20120713
  Receipt Date: 20120709
  Transmission Date: 20120928
  Serious: Yes (Death, Hospitalization, Other)
  Sender: FDA-Public Use
  Company Number: GB-ASTRAZENECA-2012SE28461

PATIENT
  Age: 29935 Day
  Sex: Male

DRUGS (6)
  1. ASPIRIN [Concomitant]
     Indication: HYPERTENSION
     Dates: start: 20060227
  2. NIFEDIPINE MR [Concomitant]
     Indication: HYPERTENSION
     Dates: start: 20080906
  3. CASODEX [Suspect]
     Indication: PROSTATE CANCER
     Route: 048
     Dates: start: 20120313, end: 20120428
  4. ZOLADEX [Suspect]
     Indication: PROSTATE CANCER
     Route: 058
     Dates: start: 20111201, end: 20120403
  5. ZOPICLONE [Concomitant]
     Indication: INSOMNIA
     Dates: start: 20010517
  6. DOXAZOSIN MESYLATE [Concomitant]
     Indication: HYPERTENSION
     Dates: start: 20050722

REACTIONS (2)
  - CARDIAC FAILURE CONGESTIVE [None]
  - RESPIRATORY TRACT INFECTION [None]
